FAERS Safety Report 7971760-8 (Version None)
Quarter: 2011Q4

REPORT INFORMATION
  Report Type: 
  Country: None (occurrence: None)
  Receive Date: 20111212
  Receipt Date: 20111128
  Transmission Date: 20120403
  Serious: Yes (Other)
  Sender: FDA-Public Use
  Company Number: PL-ACTELION-A-CH2011-57658

PATIENT
  Age: 36 Year
  Sex: Male

DRUGS (1)
  1. ZAVESCA [Suspect]
     Indication: GAUCHER'S DISEASE
     Dosage: 300 MG, QD
     Route: 048
     Dates: start: 20071001, end: 20090101

REACTIONS (19)
  - ELECTROMYOGRAM ABNORMAL [None]
  - MUSCLE CONTRACTIONS INVOLUNTARY [None]
  - CHITOTRIOSIDASE INCREASED [None]
  - CONDITION AGGRAVATED [None]
  - MUSCLE ATROPHY [None]
  - HEPATOMEGALY [None]
  - CACHEXIA [None]
  - SPLENOMEGALY [None]
  - NO THERAPEUTIC RESPONSE [None]
  - MUSCULAR WEAKNESS [None]
  - CONCOMITANT DISEASE AGGRAVATED [None]
  - ANAEMIA [None]
  - THROMBOCYTOPENIA [None]
  - POLYNEUROPATHY [None]
  - DIARRHOEA [None]
  - PERONEAL NERVE PALSY [None]
  - GAIT DISTURBANCE [None]
  - PARESIS [None]
  - ELECTROENCEPHALOGRAM ABNORMAL [None]
